FAERS Safety Report 20170469 (Version 4)
Quarter: 2022Q1

REPORT INFORMATION
  Report Type: Spontaneous
  Country: US (occurrence: US)
  Receive Date: 20211210
  Receipt Date: 20220321
  Transmission Date: 20220423
  Serious: No
  Sender: FDA-Public Use
  Company Number: US-SA-SAC20211208000137

PATIENT
  Age: 37 Year
  Sex: Male
  Weight: 132.88 kg

DRUGS (1)
  1. DUPIXENT [Suspect]
     Active Substance: DUPILUMAB
     Indication: Dermatitis allergic
     Dosage: 300 MG, QOW
     Route: 058
     Dates: start: 20210602

REACTIONS (3)
  - Therapeutic response decreased [Unknown]
  - Unevaluable event [Unknown]
  - Product use in unapproved indication [Unknown]
